FAERS Safety Report 7320480-1 (Version None)
Quarter: 2011Q1

REPORT INFORMATION
  Report Type: 
  Country: None (occurrence: None)
  Receive Date: 20110228
  Receipt Date: 20110221
  Transmission Date: 20110831
  Serious: Yes (Other)
  Sender: FDA-Public Use
  Company Number: B0702096A

PATIENT
  Age: 38 Year
  Sex: Female

DRUGS (5)
  1. CALONAL [Concomitant]
     Dosage: 800MG PER DAY
     Route: 048
     Dates: start: 20110215
  2. BIOFERMIN R [Concomitant]
     Dosage: 3IUAX PER DAY
     Route: 048
     Dates: start: 20110218
  3. RELENZA [Suspect]
     Indication: INFLUENZA
     Dosage: 20MG PER DAY
     Route: 055
     Dates: start: 20110218, end: 20110220
  4. TRANEXAMIC ACID [Concomitant]
     Dosage: 3IUAX PER DAY
     Route: 065
     Dates: start: 20110218
  5. MEIACT [Concomitant]
     Dosage: 300MG PER DAY
     Route: 048
     Dates: start: 20110215

REACTIONS (1)
  - METRORRHAGIA [None]
